FAERS Safety Report 5532970-2 (Version None)
Quarter: 2007Q4

REPORT INFORMATION
  Report Type: 
  Country: None (occurrence: None)
  Receive Date: 20071129
  Receipt Date: 20071129
  Transmission Date: 20080405
  Serious: No
  Sender: FDA-Public Use
  Company Number: None

PATIENT
  Age: 56 Year
  Sex: Female
  Weight: 62.1428 kg

DRUGS (1)
  1. CHANTIX [Suspect]
     Indication: SMOKING CESSATION THERAPY
     Dates: start: 20070829, end: 20071123

REACTIONS (8)
  - ANGER [None]
  - ANXIETY [None]
  - DEPRESSION [None]
  - DIZZINESS [None]
  - DRUG DEPENDENCE [None]
  - NAUSEA [None]
  - SOMNOLENCE [None]
  - SUICIDAL IDEATION [None]
